FAERS Safety Report 12252978 (Version 1)
Quarter: 2016Q2

REPORT INFORMATION
  Report Type: Spontaneous
  Country: US (occurrence: US)
  Receive Date: 20160411
  Receipt Date: 20160411
  Transmission Date: 20160815
  Serious: No
  Sender: FDA-Public Use
  Company Number: US-ACTAVIS-2015-27424

PATIENT
  Sex: Female

DRUGS (1)
  1. MICONAZOLE NITRATE (AMALLC) [Suspect]
     Active Substance: MICONAZOLE NITRATE
     Dosage: 100 MG, UNKNOWN
     Route: 067
     Dates: start: 20151129

REACTIONS (1)
  - Abdominal pain [Not Recovered/Not Resolved]
